FAERS Safety Report 4738090-9 (Version None)
Quarter: 2005Q3

REPORT INFORMATION
  Report Type: 
  Country: None (occurrence: None)
  Receive Date: 20050805
  Receipt Date: 20050805
  Transmission Date: 20060218
  Serious: Yes (Other)
  Sender: FDA-Public Use
  Company Number: None

PATIENT
  Age: 44 Year
  Sex: Male
  Weight: 84.369 kg

DRUGS (1)
  1. CEFTRIAXONE INJECTION 1 GRAM VIAL [Suspect]
     Indication: GONORRHOEA
     Dosage: 250MG X 1 DOSE
     Dates: start: 20050707

REACTIONS (5)
  - COLD SWEAT [None]
  - FEELING COLD [None]
  - LOSS OF CONSCIOUSNESS [None]
  - PALLOR [None]
  - SYNCOPE VASOVAGAL [None]
